FAERS Safety Report 4821482-7 (Version None)
Quarter: 2005Q4

REPORT INFORMATION
  Report Type: 
  Country: None (occurrence: None)
  Receive Date: 20051107
  Receipt Date: 20050805
  Transmission Date: 20060501
  Serious: Yes (Hospitalization)
  Sender: FDA-Public Use
  Company Number: US-GLAXOSMITHKLINE-A0569133A

PATIENT
  Age: 53 Year
  Sex: Female

DRUGS (17)
  1. IMITREX [Suspect]
     Indication: MIGRAINE
     Dosage: 1INJ AS REQUIRED
     Route: 058
     Dates: start: 19990101
  2. PROTONIX [Concomitant]
  3. LEVOTHYROXINE [Concomitant]
  4. RITALIN [Concomitant]
  5. PAXIL [Concomitant]
  6. LAMICTAL [Concomitant]
  7. MULTI-VITAMIN [Concomitant]
  8. TOPAMAX [Concomitant]
  9. LACTULOSE [Concomitant]
  10. EFFEXOR [Concomitant]
  11. METOPROLOL [Concomitant]
  12. MECLIZINE [Concomitant]
  13. HYDROCHLOROTHIAZIDE [Concomitant]
  14. MICRO-K [Concomitant]
  15. LIBRIUM [Concomitant]
  16. PROTONIX [Concomitant]
  17. ZOFRAN [Concomitant]

REACTIONS (6)
  - FOREIGN BODY TRAUMA [None]
  - INJECTION SITE ERYTHEMA [None]
  - INJECTION SITE PAIN [None]
  - OEDEMA PERIPHERAL [None]
  - PHARMACEUTICAL PRODUCT COMPLAINT [None]
  - SCAR [None]
